FAERS Safety Report 4388027-X (Version None)
Quarter: 2004Q2

REPORT INFORMATION
  Report Type: 
  Country: None (occurrence: None)
  Receive Date: 20040607
  Receipt Date: 20030603
  Transmission Date: 20050107
  Serious: Yes (Other)
  Sender: FDA-Public Use
  Company Number: 320454

PATIENT
  Sex: Female
  Weight: 3 kg

DRUGS (3)
  1. ACCUTANE [Suspect]
     Indication: ACNE
     Dosage: 40 MG ORAL
     Route: 048
     Dates: start: 20020124, end: 20020712
  2. ORAL CONTRACEPTIVE PILL (ORAL CONTRACEPTIVE NOS) [Concomitant]
  3. ANTIBIOTIC [Concomitant]

REACTIONS (4)
  - LIVE BIRTH [None]
  - NO ADVERSE DRUG EFFECT [None]
  - NO ADVERSE EFFECT [None]
  - NORMAL NEWBORN [None]
